FAERS Safety Report 4526373-7 (Version None)
Quarter: 2004Q4

REPORT INFORMATION
  Report Type: 
  Country: None (occurrence: None)
  Receive Date: 20041214
  Receipt Date: 20041202
  Transmission Date: 20050328
  Serious: Yes (Disabling)
  Sender: FDA-Public Use
  Company Number: JP-GLAXOSMITHKLINE-B0359215A

PATIENT
  Age: 77 Year
  Sex: Female

DRUGS (2)
  1. DERMOVATE [Suspect]
     Dosage: 1.67G PER DAY
     Route: 061
     Dates: start: 20041012, end: 20041026
  2. MYALONE [Concomitant]
     Route: 061

REACTIONS (2)
  - HYPERPYREXIA [None]
  - HYPOTENSION [None]
